FAERS Safety Report 6720314-X (Version None)
Quarter: 2010Q2

REPORT INFORMATION
  Report Type: 
  Country: None (occurrence: None)
  Receive Date: 20100507
  Receipt Date: 20100426
  Transmission Date: 20101027
  Serious: Yes (Other)
  Sender: FDA-Public Use
  Company Number: 2010SP023803

PATIENT
  Age: 72 Year
  Sex: Female
  Weight: 88 kg

DRUGS (1)
  1. CLARITIN [Suspect]
     Indication: SEASONAL ALLERGY
     Dosage: 1 DF;QD;PO
     Route: 048
     Dates: start: 20100405, end: 20100412

REACTIONS (3)
  - HYPERSENSITIVITY [None]
  - MOVEMENT DISORDER [None]
  - PARAESTHESIA ORAL [None]
